FAERS Safety Report 8908141 (Version 2)
Quarter: 2012Q4

REPORT INFORMATION
  Report Type: 
  Country: NL (occurrence: NL)
  Receive Date: 20121114
  Receipt Date: 20121130
  Transmission Date: 20130627
  Serious: Yes (Life-Threatening, Other)
  Sender: FDA-Public Use
  Company Number: NL-ASTRAZENECA-2012SE84539

PATIENT
  Age: 21852 Day
  Sex: Female
  Weight: 61 kg

DRUGS (4)
  1. VANDETANIB [Suspect]
     Indication: THYROID CANCER
     Route: 048
     Dates: start: 201202
  2. VANDETANIB [Suspect]
     Indication: THYROID CANCER
     Route: 048
     Dates: start: 20120216, end: 20121106
  3. THYROXINE [Concomitant]
     Indication: THYROIDECTOMY
     Route: 048
     Dates: start: 1991
  4. CALCIUM [Concomitant]
     Indication: BLOOD CALCIUM DECREASED
     Route: 048
     Dates: start: 20120223

REACTIONS (2)
  - Pulmonary embolism [Not Recovered/Not Resolved]
  - Electrocardiogram abnormal [Unknown]
